FAERS Safety Report 25856171 (Version 2)
Quarter: 2025Q4

REPORT INFORMATION
  Report Type: Report from Study
  Country: US (occurrence: US)
  Receive Date: 20250928
  Receipt Date: 20251026
  Transmission Date: 20260118
  Serious: Yes (Disabling)
  Sender: AIMMUNE
  Company Number: US-ZENPEP LLC-2025AIMT00899

PATIENT

DRUGS (2)
  1. ZENPEP [Suspect]
     Active Substance: PANCRELIPASE AMYLASE\PANCRELIPASE LIPASE\PANCRELIPASE PROTEASE
     Indication: Pancreatic failure
     Dosage: 40,000 USP CAPSULES, 100 CT
     Route: 048
  2. ZENPEP [Suspect]
     Active Substance: PANCRELIPASE AMYLASE\PANCRELIPASE LIPASE\PANCRELIPASE PROTEASE
     Dosage: 40,000 USP CAPSULES, ONCE, LAST DOSE PRIOR TO EVENT
     Route: 048

REACTIONS (2)
  - Speech disorder [Unknown]
  - Pain [Unknown]
